FAERS Safety Report 24197292 (Version 1)
Quarter: 2024Q3

REPORT INFORMATION
  Report Type: Spontaneous
  Country: US (occurrence: US)
  Receive Date: 20240810
  Receipt Date: 20240810
  Transmission Date: 20241017
  Serious: Yes (Hospitalization)
  Sender: AMGEN
  Company Number: US-AMGEN-USASP2024155962

PATIENT
  Age: 3 Year
  Sex: Female

DRUGS (1)
  1. RAVICTI [Suspect]
     Active Substance: GLYCEROL PHENYLBUTYRATE
     Indication: Ornithine transcarbamoylase deficiency
     Dosage: 2 MILLILITER, TID (1.1 GM/ML)
     Route: 048
     Dates: start: 202404

REACTIONS (1)
  - Ammonia increased [Unknown]

NARRATIVE: CASE EVENT DATE: 20240731
